FAERS Safety Report 7977449-3 (Version None)
Quarter: 2011Q4

REPORT INFORMATION
  Report Type: 
  Country: None (occurrence: None)
  Receive Date: 20111214
  Receipt Date: 20111117
  Transmission Date: 20120403
  Serious: No
  Sender: FDA-Public Use
  Company Number: US-AMGEN-USASP2011051255

PATIENT
  Age: 62 Year
  Sex: Female

DRUGS (5)
  1. HYDROQUINONE [Concomitant]
     Indication: PIGMENTATION DISORDER
     Dosage: 4%
     Route: 061
     Dates: start: 20101206
  2. RETIN-A [Concomitant]
     Indication: PIGMENTATION DISORDER
     Dosage: 0.05%
     Route: 061
     Dates: start: 20110909
  3. ENBREL [Suspect]
     Indication: PSORIASIS
     Dosage: 50 MG, 2 TIMES/WK
     Route: 058
     Dates: start: 20110926
  4. TACLONEX [Concomitant]
     Indication: PSORIASIS
     Dosage: 0.05%
     Route: 061
     Dates: start: 20110909
  5. UREA [Concomitant]
     Indication: PSORIASIS
     Dosage: 40%
     Route: 061
     Dates: start: 20110909

REACTIONS (5)
  - DISCOMFORT [None]
  - RASH [None]
  - NAUSEA [None]
  - ASTHENIA [None]
  - PRURITUS [None]
